FAERS Safety Report 14934179 (Version 1)
Quarter: 2018Q2

REPORT INFORMATION
  Report Type: Spontaneous
  Country: US (occurrence: US)
  Receive Date: 20180524
  Receipt Date: 20180524
  Transmission Date: 20180711
  Serious: No
  Sender: FDA-Public Use
  Company Number: US-ASTRAZENECA-2018SE56412

PATIENT
  Age: 25765 Day
  Sex: Female
  Weight: 95.3 kg

DRUGS (2)
  1. BRILINTA [Suspect]
     Active Substance: TICAGRELOR
     Indication: STENT PLACEMENT
     Route: 048
     Dates: start: 201706
  2. ASPIRIN. [Concomitant]
     Active Substance: ASPIRIN
     Indication: STENT PLACEMENT
     Dates: start: 2001

REACTIONS (5)
  - Movement disorder [Unknown]
  - Pain [Unknown]
  - Fall [Unknown]
  - Limb injury [Unknown]
  - Bone disorder [Unknown]

NARRATIVE: CASE EVENT DATE: 20180420
